FAERS Safety Report 10090257 (Version 1)
Quarter: 2014Q2

REPORT INFORMATION
  Report Type: Spontaneous
  Country: US (occurrence: None)
  Receive Date: 20140411
  Receipt Date: 20140411
  Transmission Date: 20141212
  Serious: No
  Sender: FDA-Public Use
  Company Number: 2014US002957

PATIENT
  Age: 72 Year
  Sex: Male

DRUGS (6)
  1. ICLUSIG (PONATINIB) [Suspect]
     Indication: PRODUCT USED FOR UNKNOWN INDICATION
     Route: 048
  2. ALDACTONE [Concomitant]
  3. ATENOLOL [Concomitant]
  4. CARVEDILOL [Concomitant]
  5. CENTRUM SILVER [Concomitant]
  6. LASIX (FUROSEMIDE) [Concomitant]

REACTIONS (6)
  - Chest pain [None]
  - Urine odour abnormal [None]
  - Headache [None]
  - Pyrexia [None]
  - Pain [None]
  - Chills [None]
